FAERS Safety Report 16607683 (Version 1)
Quarter: 2019Q3

REPORT INFORMATION
  Report Type: Spontaneous
  Country: DE (occurrence: DE)
  Receive Date: 20190722
  Receipt Date: 20190722
  Transmission Date: 20191004
  Serious: Yes (Hospitalization, Other)
  Sender: FDA-Public Use
  Company Number: DE-ACCORD-142732

PATIENT
  Age: 17 Year
  Sex: Female
  Weight: 41 kg

DRUGS (5)
  1. PREDNISOLONE. [Concomitant]
     Active Substance: PREDNISOLONE
     Indication: LIMBIC ENCEPHALITIS
     Dosage: DAILY DOSE: 7.5 MG MILLGRAM(S) EVERY DAYS
     Route: 048
     Dates: start: 20150709, end: 20190312
  2. LAMOTRIGINE. [Concomitant]
     Active Substance: LAMOTRIGINE
     Indication: PARTIAL SEIZURES
     Dosage: DAILY DOSE: 4 DF DOSAGE FORM EVERY DAYS 2 SEPARATED DOSES,STRENGTH : 50 MG
     Route: 048
     Dates: start: 20160120
  3. OXCARBAZEPINE. [Interacting]
     Active Substance: OXCARBAZEPINE
     Indication: PARTIAL SEIZURES
     Dosage: DAILY DOSE: 75 MG MILLGRAM(S) EVERY DAYS,DRUG LAST ADMINISTERED 11-MAR-2019
     Dates: start: 20190110
  4. LACOSAMIDE. [Concomitant]
     Active Substance: LACOSAMIDE
     Indication: PARTIAL SEIZURES
     Dosage: 1,5-0-1 STRENGTH : 50
     Route: 048
     Dates: start: 20190204
  5. MYCOPHENOLIC ACID. [Suspect]
     Active Substance: MYCOPHENOLIC ACID
     Indication: LIMBIC ENCEPHALITIS
     Dosage: DAILY DOSE: 3 DF DOSAGE FORM EVERY DAYS 2 SEPARATED DOSES,STRENGTH : 500 MG
     Route: 048
     Dates: start: 20181115, end: 20190321

REACTIONS (5)
  - Weight decreased [Recovered/Resolved]
  - Condition aggravated [Recovered/Resolved]
  - Generalised tonic-clonic seizure [Recovered/Resolved]
  - Drug interaction [Unknown]
  - Off label use [Unknown]

NARRATIVE: CASE EVENT DATE: 20190304
